FAERS Safety Report 8812004 (Version 1)
Quarter: 2012Q4

REPORT INFORMATION
  Report Type: Spontaneous
  Country: US (occurrence: None)
  Receive Date: 20120926
  Receipt Date: 20120926
  Transmission Date: 20130627
  Serious: No
  Sender: FDA-Public Use
  Company Number: None

PATIENT
  Age: 66 Year
  Sex: Female

DRUGS (1)
  1. ENBREL [Suspect]
     Dosage: 50MG  QW  SQ
     Route: 058
     Dates: start: 20120403, end: 20120916

REACTIONS (3)
  - Rash generalised [None]
  - Pyrexia [None]
  - Chills [None]
